FAERS Safety Report 16687528 (Version 1)
Quarter: 2019Q4

REPORT INFORMATION
  Report Type: Spontaneous
  Country: US (occurrence: US)
  Receive Date: 20190808
  Receipt Date: 20190808
  Transmission Date: 20200122
  Serious: No
  Sender: FDA-Public Use
  Company Number: None

PATIENT
  Age: 59 Year
  Sex: Male
  Weight: 96.75 kg

DRUGS (3)
  1. TEMAZEPAM 15MG (RESTORIL) GENERIC [Suspect]
     Active Substance: TEMAZEPAM
     Indication: INSOMNIA
     Dosage: ?          QUANTITY:1 CAPSULE(S);?
     Route: 048
     Dates: start: 20190807, end: 20190808
  2. FINASTERIDE. [Concomitant]
     Active Substance: FINASTERIDE
  3. MELATONIN [Concomitant]
     Active Substance: MELATONIN

REACTIONS (5)
  - Morbid thoughts [None]
  - Agitation [None]
  - Tachyphrenia [None]
  - Anxiety [None]
  - Hypertension [None]

NARRATIVE: CASE EVENT DATE: 20190807
